FAERS Safety Report 9849946 (Version 7)
Quarter: 2014Q3

REPORT INFORMATION
  Report Type: Spontaneous
  Country: JP (occurrence: JP)
  Receive Date: 20140128
  Receipt Date: 20140708
  Transmission Date: 20150326
  Serious: Yes (Life-Threatening, Hospitalization, Disabling, Other)
  Sender: FDA-Public Use
  Company Number: JP-CUBIST PHARMACEUTICAL, INC.-2014CBST000065

PATIENT

DRUGS (20)
  1. CUBICIN [Suspect]
     Active Substance: DAPTOMYCIN
     Indication: PELVIC ABSCESS
  2. NORVASC [Concomitant]
     Active Substance: AMLODIPINE BESYLATE
     Dosage: 2.5 MG, ONCE DAILY
     Route: 048
     Dates: start: 20140107, end: 20140114
  3. AZILVA [Concomitant]
     Active Substance: AZILSARTAN KAMEDOXOMIL
     Indication: HYPERTENSION
     Dosage: 20 MG, ONCE DAILY
     Route: 048
     Dates: start: 20131228, end: 20140114
  4. ROZEREM [Concomitant]
     Active Substance: RAMELTEON
     Indication: INSOMNIA
     Dosage: 8 MG, ONCE DAILY
     Route: 048
     Dates: start: 20140107, end: 20140113
  5. CALONAL [Concomitant]
     Active Substance: ACETAMINOPHEN
     Indication: PYREXIA
     Dosage: 1 DF, AS NEEDED
     Route: 048
     Dates: start: 20131225, end: 20140105
  6. NEXIUM [Suspect]
     Active Substance: ESOMEPRAZOLE MAGNESIUM
     Indication: GASTRIC ULCER
     Dosage: 20 MG, ONCE DAILY
     Route: 048
     Dates: start: 20131231, end: 20140114
  7. SENNOSIDE                          /00571901/ [Concomitant]
     Active Substance: SENNOSIDE A\SENNOSIDE B\SENNOSIDES
     Indication: CONSTIPATION
     Dosage: 2 DF, SINGLE USE
     Route: 048
     Dates: start: 20131227, end: 20140104
  8. ALBUMINAR                          /01102501/ [Concomitant]
     Indication: HYPOALBUMINAEMIA
     Dosage: 50 ML, QD
     Route: 041
     Dates: start: 20131224, end: 20131231
  9. KAYTWO N [Concomitant]
     Active Substance: UNSPECIFIED INGREDIENT
     Indication: PROTHROMBIN LEVEL DECREASED
     Dosage: 20 MG, QD
     Route: 041
     Dates: start: 20131231, end: 20140104
  10. CUBICIN [Suspect]
     Active Substance: DAPTOMYCIN
     Indication: SUBCUTANEOUS ABSCESS
     Dosage: 10 MG/KG, DIVIDED DOSE FREQUENCY IS UNCERTAIN
     Route: 041
     Dates: start: 20140112, end: 20140115
  11. CUBICIN [Suspect]
     Active Substance: DAPTOMYCIN
     Indication: STAPHYLOCOCCAL INFECTION
     Dosage: 6 MG/KG, DIVIDED DOSE FREQUENCY IS UNCERTAIN
     Route: 041
     Dates: start: 20131225, end: 20140101
  12. CUBICIN [Suspect]
     Active Substance: DAPTOMYCIN
     Indication: ENDOCARDITIS
     Dosage: 8 MG/KG, DIVIDED DOSE FREQUENCY IS UNCERTAIN
     Route: 041
     Dates: start: 20140102, end: 20140111
  13. MEROPENEM. [Concomitant]
     Active Substance: MEROPENEM
     Indication: STAPHYLOCOCCAL SEPSIS
     Dosage: UNK, QD
     Route: 041
     Dates: start: 20131224, end: 20131226
  14. PROMAC                             /01312301/ [Concomitant]
     Active Substance: NITROFURANTOIN
     Indication: ZINC DEFICIENCY
  15. NORVASC [Concomitant]
     Active Substance: AMLODIPINE BESYLATE
     Indication: HYPERTENSION
     Dosage: 5 MG, ONCE DAILY
     Route: 048
     Dates: start: 20131227, end: 20140114
  16. ALBUMINAR                          /01102501/ [Concomitant]
     Dosage: 50 ML, QD
     Route: 041
     Dates: start: 20140108, end: 20140108
  17. PROMAC                             /01312301/ [Concomitant]
     Active Substance: NITROFURANTOIN
     Indication: PROPHYLAXIS AGAINST GASTROINTESTINAL ULCER
     Dosage: 75 MG, BID
     Route: 048
     Dates: start: 20131224, end: 20140114
  18. ALBUMINAR                          /01102501/ [Concomitant]
     Dosage: 50 ML, QD
     Route: 041
     Dates: start: 20140103, end: 20140103
  19. MIYA-BM [Concomitant]
     Active Substance: CLOSTRIDIUM BUTYRICUM SPORES STRAIN M-55
     Indication: ENTEROCOLITIS
     Dosage: 2 DF, TID
     Route: 048
     Dates: start: 20131224
  20. MUCOSTA [Concomitant]
     Active Substance: REBAMIPIDE
     Indication: GASTRIC ULCER
     Dosage: 100 MG, TID
     Route: 048
     Dates: start: 20131231, end: 20140108

REACTIONS (6)
  - Hepatic function abnormal [Recovering/Resolving]
  - Respiratory failure [Recovering/Resolving]
  - Urinary tract infection [Recovering/Resolving]
  - Rash [Recovering/Resolving]
  - Renal impairment [Not Recovered/Not Resolved]
  - Eosinophilic pneumonia [Recovering/Resolving]

NARRATIVE: CASE EVENT DATE: 20131226
